FAERS Safety Report 12173495 (Version 3)
Quarter: 2016Q1

REPORT INFORMATION
  Report Type: Spontaneous
  Country: US (occurrence: US)
  Receive Date: 20160311
  Receipt Date: 20160317
  Transmission Date: 20160526
  Serious: No
  Sender: FDA-Public Use
  Company Number: US-GALDERMA-US15002679

PATIENT
  Sex: Female

DRUGS (4)
  1. TRI-LUMA [Suspect]
     Active Substance: FLUOCINOLONE ACETONIDE\HYDROQUINONE\TRETINOIN
     Route: 061
     Dates: start: 20150505, end: 20150505
  2. CETAPHIL MOISTURIZING CREAM [Concomitant]
     Active Substance: COSMETICS
     Indication: DRY SKIN PROPHYLAXIS
     Route: 061
  3. TRI-LUMA [Suspect]
     Active Substance: FLUOCINOLONE ACETONIDE\HYDROQUINONE\TRETINOIN
     Indication: CHLOASMA
     Route: 061
     Dates: start: 201505, end: 20150506
  4. CETAPHIL [Concomitant]
     Active Substance: AVOBENZONE\OCTOCRYLENE\TRICLOSAN
     Indication: THERAPEUTIC SKIN CARE TOPICAL
     Route: 061

REACTIONS (5)
  - Urticaria [Recovered/Resolved]
  - Adverse reaction [Recovering/Resolving]
  - Rash [Recovering/Resolving]
  - Hypersensitivity [Not Recovered/Not Resolved]
  - Erythema [Recovering/Resolving]

NARRATIVE: CASE EVENT DATE: 201505
